FAERS Safety Report 13879449 (Version 1)
Quarter: 2017Q3

REPORT INFORMATION
  Report Type: Spontaneous
  Country: US (occurrence: US)
  Receive Date: 20170817
  Receipt Date: 20170817
  Transmission Date: 20171127
  Serious: No
  Sender: FDA-Public Use
  Company Number: US-ENDO PHARMACEUTICALS INC-2017-000540

PATIENT
  Age: 18 Year
  Sex: Female
  Weight: 87.98 kg

DRUGS (3)
  1. CAMBIA [Concomitant]
     Active Substance: DICLOFENAC POTASSIUM
     Indication: MIGRAINE
  2. PROMETHAZINE HYDROCHLORIDE TABLETS 12.5MG [Concomitant]
     Active Substance: PROMETHAZINE HYDROCHLORIDE
     Indication: NAUSEA
  3. SUMAVEL DOSEPRO [Suspect]
     Active Substance: SUMATRIPTAN SUCCINATE
     Indication: MIGRAINE
     Dosage: UNK, INJECT NO MORE THAN 2 INJECTIONS IN 24 HOURS
     Route: 065
     Dates: start: 2015

REACTIONS (6)
  - Drug dose omission [Not Recovered/Not Resolved]
  - Injection site irritation [Not Recovered/Not Resolved]
  - Device malfunction [Unknown]
  - Injection site laceration [Not Recovered/Not Resolved]
  - Wrong technique in product usage process [Not Recovered/Not Resolved]
  - Injection site pain [Not Recovered/Not Resolved]

NARRATIVE: CASE EVENT DATE: 20170129
